FAERS Safety Report 10208685 (Version 1)
Quarter: 2014Q2

REPORT INFORMATION
  Report Type: Spontaneous
  Country: US (occurrence: None)
  Receive Date: 20140529
  Receipt Date: 20140529
  Transmission Date: 20141212
  Serious: Yes (Life-Threatening, Hospitalization)
  Sender: FDA-Public Use
  Company Number: None

PATIENT
  Age: 71 Year
  Sex: Male
  Weight: 80.9 kg

DRUGS (2)
  1. BENZOCAINE [Suspect]
     Indication: LOCAL ANAESTHESIA
     Dosage: 1 SPRAY ONCE TOPICAL
     Route: 061
     Dates: start: 20140313, end: 20140313
  2. BENZOCAINE [Suspect]
     Indication: ECHOCARDIOGRAM
     Dosage: 1 SPRAY ONCE TOPICAL
     Route: 061
     Dates: start: 20140313, end: 20140313

REACTIONS (2)
  - Methaemoglobinaemia [None]
  - Post procedural complication [None]
